FAERS Safety Report 15266146 (Version 2)
Quarter: 2018Q3

REPORT INFORMATION
  Report Type: Spontaneous
  Country: ZA (occurrence: ZA)
  Receive Date: 20180810
  Receipt Date: 20180821
  Transmission Date: 20181010
  Serious: Yes (Hospitalization)
  Sender: FDA-Public Use
  Company Number: ZA-PFIZER INC-2018321597

PATIENT
  Age: 66 Year
  Sex: Male

DRUGS (3)
  1. PREXUM [Suspect]
     Active Substance: PERINDOPRIL ERBUMINE
     Dosage: 5 MG, UNK
  2. ASPAVOR [Suspect]
     Active Substance: ATORVASTATIN
     Dosage: 10 MG, UNK
  3. LANCAP [Suspect]
     Active Substance: LANSOPRAZOLE
     Dosage: 30 MG, UNK

REACTIONS (1)
  - Chest pain [Recovered/Resolved]
